FAERS Safety Report 5622702-1 (Version None)
Quarter: 2008Q1

REPORT INFORMATION
  Report Type: 
  Country: None (occurrence: None)
  Receive Date: 20080208
  Receipt Date: 20080208
  Transmission Date: 20080703
  Serious: No
  Sender: FDA-Public Use
  Company Number: None

PATIENT
  Age: 63 Year
  Sex: Male

DRUGS (1)
  1. MIDAZOLAM HCL [Suspect]
     Indication: SEDATION
     Dosage: 1MG  ONCE  IV
     Route: 042
     Dates: start: 20071127, end: 20071127

REACTIONS (2)
  - AGITATION [None]
  - MENTAL STATUS CHANGES [None]
